FAERS Safety Report 8612875-0 (Version None)
Quarter: 2012Q3

REPORT INFORMATION
  Report Type: 
  Country: None (occurrence: None)
  Receive Date: 20120822
  Receipt Date: 20111101
  Transmission Date: 20120928
  Serious: No
  Sender: FDA-Public Use
  Company Number: US-ASTRAZENECA-2011SE44484

PATIENT
  Age: 66 Year
  Sex: Male
  Weight: 79.4 kg

DRUGS (4)
  1. SYMBICORT [Suspect]
     Dosage: TWO PUFFS, TWO TIMES A DAY
     Route: 055
  2. SYMBICORT [Suspect]
     Indication: CHRONIC OBSTRUCTIVE PULMONARY DISEASE
     Dosage: 160/4.5 MCG, DAILY
     Route: 055
     Dates: start: 20091117
  3. SYMBICORT [Suspect]
     Dosage: 4 PUFFS EVERY DAY
     Route: 055
  4. SYMBICORT [Suspect]
     Dosage: 2 PUFFS EVERY DAY
     Route: 055

REACTIONS (16)
  - BENIGN PROSTATIC HYPERPLASIA [None]
  - WEIGHT DECREASED [None]
  - UPPER RESPIRATORY TRACT INFECTION [None]
  - GINGIVITIS [None]
  - HEADACHE [None]
  - RHINORRHOEA [None]
  - COUGH [None]
  - INCORRECT DOSE ADMINISTERED [None]
  - WHEEZING [None]
  - MALAISE [None]
  - INTERVERTEBRAL DISC DISORDER [None]
  - SPUTUM DISCOLOURED [None]
  - UPPER-AIRWAY COUGH SYNDROME [None]
  - DYSPHONIA [None]
  - DYSPNOEA [None]
  - LOOSE TOOTH [None]
